FAERS Safety Report 6257368-3 (Version None)
Quarter: 2009Q3

REPORT INFORMATION
  Report Type: 
  Country: None (occurrence: None)
  Receive Date: 20090706
  Receipt Date: 20090701
  Transmission Date: 20100115
  Serious: Yes (Life-Threatening)
  Sender: FDA-Public Use
  Company Number: PHHY2009DE26886

PATIENT
  Sex: Male
  Weight: 80 kg

DRUGS (1)
  1. SIMULECT [Suspect]
     Indication: LIVER TRANSPLANT
     Dosage: 20 MG, UNK
     Route: 042
     Dates: start: 20090213

REACTIONS (5)
  - ACIDOSIS [None]
  - BLOOD LACTIC ACID INCREASED [None]
  - CARDIAC ARREST [None]
  - HYPERGLYCAEMIA [None]
  - SHOCK [None]
